FAERS Safety Report 4634247-6 (Version None)
Quarter: 2005Q2

REPORT INFORMATION
  Report Type: 
  Country: None (occurrence: None)
  Receive Date: 20050413
  Receipt Date: 20050215
  Transmission Date: 20051028
  Serious: Yes (Hospitalization, Other)
  Sender: FDA-Public Use
  Company Number: US-NOVOPROD-242340

PATIENT
  Age: 82 Year
  Sex: Female

DRUGS (3)
  1. NOVOLOG [Suspect]
     Indication: INSULIN-REQUIRING TYPE II DIABETES MELLITUS
     Dosage: 42 IU, QD
     Route: 058
     Dates: start: 20050101, end: 20050203
  2. BIAXIN [Concomitant]
     Indication: GASTROINTESTINAL INFECTION
  3. PREVACID [Concomitant]
     Indication: GASTROINTESTINAL INFECTION

REACTIONS (2)
  - BLOOD GLUCOSE INCREASED [None]
  - MEDICATION ERROR [None]
